FAERS Safety Report 26077820 (Version 1)
Quarter: 2025Q4

REPORT INFORMATION
  Report Type: Spontaneous
  Country: US (occurrence: US)
  Receive Date: 20251122
  Receipt Date: 20251122
  Transmission Date: 20260117
  Serious: No
  Sender: MDD OPERATIONS
  Company Number: US-MDD US Operations-MDD202510-004057

PATIENT
  Age: 67 Year
  Sex: Female

DRUGS (1)
  1. ONAPGO [Suspect]
     Active Substance: APOMORPHINE HYDROCHLORIDE
     Indication: Parkinson^s disease
     Dosage: FOR UP TO 16 HOURS
     Dates: start: 20250927, end: 2025

REACTIONS (2)
  - Heart rate increased [Unknown]
  - Peripheral swelling [Unknown]
